FAERS Safety Report 23551423 (Version 1)
Quarter: 2024Q1

REPORT INFORMATION
  Report Type: Spontaneous
  Country: US (occurrence: US)
  Receive Date: 20240222
  Receipt Date: 20240222
  Transmission Date: 20240410
  Serious: Yes (Other)
  Sender: FDA-Public Use
  Company Number: US-ROCHE-2102865

PATIENT
  Age: 76 Year
  Sex: Female
  Weight: 59.02 kg

DRUGS (47)
  1. CLONAZEPAM [Suspect]
     Active Substance: CLONAZEPAM
     Indication: Product used for unknown indication
     Dosage: 1 IN AM, 1 AT NOON, AND 1 IN PM ;ONGOING: YES
  2. RITUXAN [Suspect]
     Active Substance: RITUXIMAB
     Indication: Rheumatoid arthritis
     Dosage: DOS: 18/JUL/2018, 02/AUG/2018, 5 HOUR INFUSION
     Route: 042
  3. ASPIRIN [Concomitant]
     Active Substance: ASPIRIN
  4. DOXEPIN [Concomitant]
     Active Substance: DOXEPIN
     Dosage: 3 PILLS IN THE PM
  5. NABUMETONE [Concomitant]
     Active Substance: NABUMETONE
     Dosage: 1 IN AM AND 1 IN PM
  6. GABAPENTIN [Concomitant]
     Active Substance: GABAPENTIN
     Dosage: 1 IN AM, 1 AT NOON, AND 1 IN PM
  7. ATENOLOL [Concomitant]
     Active Substance: ATENOLOL
     Dosage: 1 IN AM AND 1 IN PM
  8. CLONIDINE [Concomitant]
     Active Substance: CLONIDINE
     Dosage: 1 IN AM, 1 AT NOON, AND 1 IN PM
  9. TIZANIDINE [Concomitant]
     Active Substance: TIZANIDINE
     Dosage: 1 IN AM, 1 AT NOON, AND 1 IN PM
  10. NUCYNTA [Concomitant]
     Active Substance: TAPENTADOL HYDROCHLORIDE
     Dosage: 1 IN AM, 1 AT NOON, AND 1 IN PM
  11. DEXILANT [Concomitant]
     Active Substance: DEXLANSOPRAZOLE
     Dosage: 1 IN AM AND 1 AT NOON
  12. RESTASIS [Concomitant]
     Active Substance: CYCLOSPORINE
     Dosage: 1 IN AM AND 1 IN PM
  13. AMITIZA [Concomitant]
     Active Substance: LUBIPROSTONE
     Dosage: 1 IN AM AND 1 IN PM
  14. VAGIFEM [Concomitant]
     Active Substance: ESTRADIOL
     Dosage: 1 TAB EVERY MONDAY AND THURSDAY
  15. VENTOLIN HFA [Concomitant]
     Active Substance: ALBUTEROL SULFATE
     Dosage: AS NEEDED
  16. PROMETHAZINE [Concomitant]
     Active Substance: PROMETHAZINE HYDROCHLORIDE
     Dosage: AS NEEDED
  17. NITROSTAT [Concomitant]
     Active Substance: NITROGLYCERIN
     Dosage: AS NEEDED
  18. PHENAZOPYRIDINE [Concomitant]
     Active Substance: PHENAZOPYRIDINE
     Dosage: AS NEEDED
  19. OXYBUTYNIN [Concomitant]
     Active Substance: OXYBUTYNIN\OXYBUTYNIN CHLORIDE
     Dosage: AS NEEDED
  20. HYDROXYZINE HYDROCHLORIDE [Concomitant]
     Active Substance: HYDROXYZINE HYDROCHLORIDE
  21. ONDANSETRON [Concomitant]
     Active Substance: ONDANSETRON
     Dosage: AS NEEDED
  22. LIDOCAINE [Concomitant]
     Active Substance: LIDOCAINE
     Dosage: AS NEEDED
  23. HALOBETASOL [Concomitant]
     Active Substance: HALOBETASOL
  24. METHOTREXATE [Concomitant]
     Active Substance: METHOTREXATE
  25. CORTISONE [Concomitant]
     Active Substance: CORTISONE
  26. LOSARTAN POTASSIUM [Concomitant]
     Active Substance: LOSARTAN POTASSIUM
  27. XTAMPZA ER [Concomitant]
     Active Substance: OXYCODONE
  28. OXYCODONE [Concomitant]
     Active Substance: OXYCODONE\OXYCODONE HYDROCHLORIDE
  29. INSULIN NOS [Concomitant]
     Active Substance: INSULIN NOS
  30. MIRALAX [Concomitant]
     Active Substance: POLYETHYLENE GLYCOL 3350
  31. ESCITALOPRAM [Concomitant]
     Active Substance: ESCITALOPRAM OXALATE
  32. UBRELVY [Concomitant]
     Active Substance: UBROGEPANT
  33. HYOSCYAMINE SULFATE [Concomitant]
     Active Substance: HYOSCYAMINE SULFATE
  34. PROLIA [Concomitant]
     Active Substance: DENOSUMAB
  35. LEUCOVORIN CALCIUM [Concomitant]
     Active Substance: LEUCOVORIN CALCIUM
  36. TOPIRAMATE [Concomitant]
     Active Substance: TOPIRAMATE
  37. RALOXIFENE [Concomitant]
     Active Substance: RALOXIFENE
  38. POTASSIUM GLUCONATE [Concomitant]
     Active Substance: POTASSIUM GLUCONATE
  39. CLOBETASOL PROPIONATE [Concomitant]
     Active Substance: CLOBETASOL PROPIONATE
  40. OSCAL [CALCIUM CARBONATE] [Concomitant]
  41. MAGNESIUM [Concomitant]
     Active Substance: MAGNESIUM
  42. HALOBETASOL PROPIONATE [Concomitant]
     Active Substance: HALOBETASOL PROPIONATE
  43. CLARITIN [Concomitant]
     Active Substance: LORATADINE
  44. RETINOL [Concomitant]
     Active Substance: RETINOL
  45. BUTALBITAL [Concomitant]
     Active Substance: BUTALBITAL
  46. HYDROXYZINE [Concomitant]
     Active Substance: HYDROXYZINE HYDROCHLORIDE
  47. ZOFRAN [Concomitant]
     Active Substance: ONDANSETRON HYDROCHLORIDE

REACTIONS (7)
  - Sjogren^s syndrome [Not Recovered/Not Resolved]
  - Osteoporosis [Not Recovered/Not Resolved]
  - Infection [Unknown]
  - Sinus disorder [Unknown]
  - Pain [Not Recovered/Not Resolved]
  - Joint hyperextension [Not Recovered/Not Resolved]
  - Finger deformity [Not Recovered/Not Resolved]
